FAERS Safety Report 21652570 (Version 2)
Quarter: 2022Q4

REPORT INFORMATION
  Report Type: Spontaneous
  Country: MA (occurrence: MA)
  Receive Date: 20221128
  Receipt Date: 20221130
  Transmission Date: 20230112
  Serious: Yes (Other)
  Sender: FDA-Public Use
  Company Number: MA-PFIZER INC-PV202200109651

PATIENT
  Age: 49 Year
  Sex: Male

DRUGS (3)
  1. SUNITINIB MALATE [Suspect]
     Active Substance: SUNITINIB MALATE
     Indication: Renal cell carcinoma
     Dosage: 50 MG, CYCLIC
  2. SUNITINIB MALATE [Suspect]
     Active Substance: SUNITINIB MALATE
     Dosage: 37.5 MG, CYCLIC
  3. AXITINIB [Concomitant]
     Active Substance: AXITINIB
     Dosage: 10 MG, 2X/DAY

REACTIONS (4)
  - Hepatic cytolysis [Unknown]
  - Hypothyroidism [Unknown]
  - Neoplasm progression [Unknown]
  - Asthenia [Unknown]
